FAERS Safety Report 23712417 (Version 1)
Quarter: 2024Q2

REPORT INFORMATION
  Report Type: Spontaneous
  Country: US (occurrence: None)
  Receive Date: 20240404
  Receipt Date: 20240404
  Transmission Date: 20240716
  Serious: Yes (Hospitalization)
  Sender: FDA-Public Use
  Company Number: None

PATIENT
  Sex: Male

DRUGS (2)
  1. TADALAFIL [Suspect]
     Active Substance: TADALAFIL
     Indication: Pulmonary arterial hypertension
     Dosage: FREQUENCY : DAILY;?
     Route: 048
     Dates: start: 202309
  2. TYVASO [Concomitant]

REACTIONS (4)
  - Dyspnoea [None]
  - Product use issue [None]
  - Product expiration date issue [None]
  - Treatment noncompliance [None]

NARRATIVE: CASE EVENT DATE: 20240402
